FAERS Safety Report 9728545 (Version 1)
Quarter: 2013Q4

REPORT INFORMATION
  Report Type: Spontaneous
  Country: US (occurrence: US)
  Receive Date: 20131204
  Receipt Date: 20131204
  Transmission Date: 20140711
  Serious: No
  Sender: FDA-Public Use
  Company Number: US-009507513-1311USA001568

PATIENT
  Age: 59 Year
  Sex: Male

DRUGS (7)
  1. PEGINTRON [Suspect]
     Indication: HEPATITIS C
     Dosage: INJ 150, 0.05 WEEKLY
     Route: 058
  2. REBETOL [Suspect]
  3. INSULIN [Concomitant]
  4. GLYBURIDE [Concomitant]
  5. ISENTRESS [Concomitant]
  6. VIREAD [Concomitant]
  7. METFORMIN [Concomitant]

REACTIONS (2)
  - Neuralgia [Not Recovered/Not Resolved]
  - Irritability [Unknown]
